FAERS Safety Report 20501894 (Version 1)
Quarter: 2022Q1

REPORT INFORMATION
  Report Type: Spontaneous
  Country: US (occurrence: US)
  Receive Date: 20220222
  Receipt Date: 20220222
  Transmission Date: 20220423
  Serious: Yes (Other)
  Sender: FDA-Public Use
  Company Number: US-MLMSERVICE-20220207-3360942-1

PATIENT
  Age: 33 Year
  Sex: Female

DRUGS (3)
  1. TESTOSTERONE [Suspect]
     Active Substance: TESTOSTERONE
     Indication: Androgen replacement therapy
     Dosage: 100 MG, WEEKLY
     Route: 042
     Dates: start: 200904, end: 2009
  2. TESTOSTERONE [Suspect]
     Active Substance: TESTOSTERONE
     Indication: Hormone therapy
     Dosage: 120 MG, WEEKLY
     Route: 042
     Dates: end: 201005
  3. TESTOSTERONE [Suspect]
     Active Substance: TESTOSTERONE
     Dosage: 100 MG, WEEKLY
     Dates: start: 201005

REACTIONS (4)
  - Blood testosterone increased [Recovered/Resolved]
  - Granuloma [Recovering/Resolving]
  - Diastolic hypertension [Unknown]
  - Vocal cord atrophy [Recovering/Resolving]

NARRATIVE: CASE EVENT DATE: 20100401
